FAERS Safety Report 6167781-0 (Version None)
Quarter: 2009Q2

REPORT INFORMATION
  Report Type: 
  Country: None (occurrence: None)
  Receive Date: 20090427
  Receipt Date: 20090416
  Transmission Date: 20091009
  Serious: Yes (Death)
  Sender: FDA-Public Use
  Company Number: SG-JNJFOC-20090404156

PATIENT
  Sex: Male

DRUGS (7)
  1. DORIBAX [Suspect]
     Indication: DRUG USE FOR UNKNOWN INDICATION
     Route: 041
  2. VORICONAZOLE [Concomitant]
  3. FILGRASTIM [Concomitant]
  4. ACYCLOVIR [Concomitant]
  5. PREDNISOLONE [Concomitant]
  6. CYCLOPHOSPHAMIDE [Concomitant]
  7. NORADRENALINE [Concomitant]

REACTIONS (1)
  - SEPTIC SHOCK [None]
